FAERS Safety Report 4983948-9 (Version None)
Quarter: 2006Q2

REPORT INFORMATION
  Report Type: 
  Country: None (occurrence: None)
  Receive Date: 20060426
  Receipt Date: 20060424
  Transmission Date: 20061013
  Serious: Yes (Hospitalization)
  Sender: FDA-Public Use
  Company Number: FR-MERCK-0604FRA00062

PATIENT
  Age: 82 Year
  Sex: Female

DRUGS (13)
  1. COZAAR [Suspect]
     Indication: HYPERTENSION
     Route: 048
     Dates: end: 20060327
  2. AMOXICILLIN AND CLAVULANATE POTASSIUM [Suspect]
     Indication: ERYSIPELAS
     Route: 048
     Dates: end: 20060320
  3. URAPIDIL [Suspect]
     Indication: HYPERTENSION
     Route: 048
     Dates: end: 20060327
  4. OFLOXACIN [Suspect]
     Indication: ERYSIPELAS
     Route: 048
     Dates: start: 20060311, end: 20060326
  5. OFLOXACIN [Suspect]
     Indication: WOUND
     Route: 048
     Dates: start: 20060311, end: 20060326
  6. PRISTINAMYCIN [Suspect]
     Indication: ERYSIPELAS
     Route: 048
     Dates: start: 20060320, end: 20060326
  7. PRISTINAMYCIN [Suspect]
     Indication: WOUND
     Route: 048
     Dates: start: 20060320, end: 20060326
  8. AMIODARONE [Suspect]
     Route: 048
     Dates: start: 20060314, end: 20060326
  9. FORMOTEROL FUMARATE [Concomitant]
     Indication: ASTHMA
     Route: 055
  10. BUDESONIDE [Concomitant]
     Indication: ASTHMA
     Route: 055
  11. ASPIRIN [Concomitant]
     Route: 048
  12. FOLIC ACID [Concomitant]
     Indication: ANAEMIA
     Route: 048
  13. FLUINDIONE [Concomitant]
     Route: 048

REACTIONS (2)
  - DRUG ERUPTION [None]
  - RENAL ARTERY STENOSIS [None]
